FAERS Safety Report 6470706-1 (Version None)
Quarter: 2009Q4

REPORT INFORMATION
  Report Type: 
  Country: None (occurrence: None)
  Receive Date: 20091203
  Receipt Date: 20091124
  Transmission Date: 20100525
  Serious: Yes (Other)
  Sender: FDA-Public Use
  Company Number: A0826653A

PATIENT
  Age: 20 Year
  Sex: Female

DRUGS (4)
  1. PAXIL [Suspect]
     Indication: OBSESSIVE-COMPULSIVE DISORDER
     Dosage: 50MG PER DAY
     Route: 048
     Dates: start: 20030101
  2. WELLBUTRIN [Concomitant]
  3. YASMIN [Concomitant]
  4. DDAVP [Concomitant]

REACTIONS (20)
  - ABNORMAL DREAMS [None]
  - ANXIETY [None]
  - ASTHENIA [None]
  - CHILLS [None]
  - DYSSTASIA [None]
  - EMOTIONAL DISTRESS [None]
  - FEELING COLD [None]
  - HEADACHE [None]
  - HOMICIDAL IDEATION [None]
  - HOT FLUSH [None]
  - INSOMNIA [None]
  - NAUSEA [None]
  - NIGHTMARE [None]
  - OBSESSIVE-COMPULSIVE DISORDER [None]
  - PARAESTHESIA [None]
  - PHOTOSENSITIVITY REACTION [None]
  - SUICIDAL IDEATION [None]
  - TIC [None]
  - VISION BLURRED [None]
  - VOMITING [None]
